FAERS Safety Report 16790241 (Version 1)
Quarter: 2019Q3

REPORT INFORMATION
  Report Type: Spontaneous
  Country: US (occurrence: US)
  Receive Date: 20190910
  Receipt Date: 20190910
  Transmission Date: 20191005
  Serious: Yes (Hospitalization, Other)
  Sender: FDA-Public Use
  Company Number: PHHY2019US204600

PATIENT
  Age: 29 Year
  Sex: Female

DRUGS (11)
  1. MYCOPHENOLATE MOFETIL. [Suspect]
     Active Substance: MYCOPHENOLATE MOFETIL
     Indication: RENAL TRANSPLANT
     Dosage: 1000 MG, BID
     Route: 065
  2. MYCOPHENOLATE MOFETIL. [Suspect]
     Active Substance: MYCOPHENOLATE MOFETIL
     Indication: IMMUNOSUPPRESSANT DRUG THERAPY
  3. FLUCONAZOLE. [Interacting]
     Active Substance: FLUCONAZOLE
     Indication: OROPHARYNGEAL CANDIDIASIS
     Route: 042
  4. NYSTATIN. [Concomitant]
     Active Substance: NYSTATIN
     Indication: OPPORTUNISTIC INFECTION PROPHYLAXIS
     Route: 065
  5. BACTRIM [Concomitant]
     Active Substance: SULFAMETHOXAZOLE\TRIMETHOPRIM
     Indication: OPPORTUNISTIC INFECTION PROPHYLAXIS
     Route: 065
  6. VALGANCICLOVIR. [Concomitant]
     Active Substance: VALGANCICLOVIR
     Indication: OPPORTUNISTIC INFECTION PROPHYLAXIS
     Route: 065
  7. FLUCONAZOLE. [Interacting]
     Active Substance: FLUCONAZOLE
     Indication: OESOPHAGEAL CANDIDIASIS
     Dosage: UNK
     Route: 048
  8. PREDNISONE. [Suspect]
     Active Substance: PREDNISONE
     Indication: IMMUNOSUPPRESSANT DRUG THERAPY
  9. TACROLIMUS. [Interacting]
     Active Substance: TACROLIMUS
     Indication: IMMUNOSUPPRESSANT DRUG THERAPY
  10. PREDNISONE. [Suspect]
     Active Substance: PREDNISONE
     Indication: RENAL TRANSPLANT
     Dosage: 5 MG, QD
     Route: 065
  11. TACROLIMUS. [Interacting]
     Active Substance: TACROLIMUS
     Indication: RENAL TRANSPLANT
     Route: 065

REACTIONS (24)
  - Oropharyngeal pain [Recovered/Resolved]
  - Oropharyngeal plaque [Recovered/Resolved]
  - Tachycardia [Recovering/Resolving]
  - Product use in unapproved indication [Unknown]
  - Pyrexia [Recovered/Resolved]
  - Pharyngeal stenosis [Recovered/Resolved]
  - Tonsillar hypertrophy [Recovered/Resolved]
  - Leukocytosis [Unknown]
  - Odynophagia [Recovered/Resolved]
  - Pharyngeal erythema [Recovered/Resolved]
  - Chest pain [Recovered/Resolved]
  - Lymphadenopathy [Unknown]
  - Candida infection [Recovering/Resolving]
  - Herpes simplex oesophagitis [Recovered/Resolved]
  - Tonsillitis [Recovered/Resolved]
  - Ill-defined disorder [Recovered/Resolved]
  - Sepsis [Unknown]
  - Drug interaction [Unknown]
  - Dysphagia [Recovered/Resolved]
  - Oropharyngeal candidiasis [Recovered/Resolved]
  - Tonsillar exudate [Recovered/Resolved]
  - Herpes simplex [Unknown]
  - Kidney transplant rejection [Recovering/Resolving]
  - Acute kidney injury [Unknown]
